FAERS Safety Report 7184174-8 (Version None)
Quarter: 2010Q4

REPORT INFORMATION
  Report Type: 
  Country: None (occurrence: None)
  Receive Date: 20101222
  Receipt Date: 20101216
  Transmission Date: 20110411
  Serious: Yes (Other)
  Sender: FDA-Public Use
  Company Number: US-ABBOTT-10P-163-0687026-00

PATIENT
  Sex: Female
  Weight: 81.72 kg

DRUGS (2)
  1. HUMIRA [Suspect]
     Indication: RHEUMATOID ARTHRITIS
     Route: 058
     Dates: start: 20060101, end: 20101009
  2. COZAAR [Concomitant]
     Indication: HYPERTENSION

REACTIONS (7)
  - CORNEAL SCAR [None]
  - HERPES ZOSTER [None]
  - KERATITIS HERPETIC [None]
  - PRURITUS [None]
  - RASH VESICULAR [None]
  - ULCERATIVE KERATITIS [None]
  - VISION BLURRED [None]
